FAERS Safety Report 7591827-6 (Version None)
Quarter: 2011Q3

REPORT INFORMATION
  Report Type: 
  Country: None (occurrence: None)
  Receive Date: 20110706
  Receipt Date: 20110629
  Transmission Date: 20111222
  Serious: No
  Sender: FDA-Public Use
  Company Number: US-TEVA-289000USA

PATIENT
  Sex: Female
  Weight: 66.738 kg

DRUGS (5)
  1. VALTREX [Concomitant]
     Indication: HERPES SIMPLEX
  2. ORTHO TRI-CYCLEN LO [Concomitant]
     Indication: CONTRACEPTION
  3. VITAMIN AND MINERAL PRENATAL SUPPLEMENT W/ FOLIC ACID CAP [Concomitant]
     Indication: PAPILLOMA VIRAL INFECTION
  4. PLAN B ONE-STEP [Suspect]
     Indication: POST COITAL CONTRACEPTION
     Dosage: 1.5 MILLIGRAM;
     Route: 048
     Dates: start: 20110623, end: 20110623
  5. FOLIC ACID [Concomitant]
     Indication: PAPILLOMA VIRAL INFECTION

REACTIONS (3)
  - NAUSEA [None]
  - PELVIC PAIN [None]
  - MENSTRUATION IRREGULAR [None]
